FAERS Safety Report 19136231 (Version 2)
Quarter: 2021Q2

REPORT INFORMATION
  Report Type: Spontaneous
  Country: HR (occurrence: HR)
  Receive Date: 20210414
  Receipt Date: 20210422
  Transmission Date: 20210717
  Serious: Yes (Hospitalization, Other)
  Sender: FDA-Public Use
  Company Number: HR-009507513-2104HRV001689

PATIENT
  Age: 70 Year
  Sex: Male

DRUGS (5)
  1. DECORTIN [Concomitant]
     Active Substance: PREDNISONE
     Dosage: (10 MG TABLET) UNK
     Route: 048
     Dates: start: 202101
  2. COVID?19 VACCINE NOS. [Concomitant]
     Active Substance: COVID-19 VACCINE NOS
     Indication: COVID-19 IMMUNISATION
     Dosage: FIRST DOSE
     Dates: start: 20210107, end: 20210107
  3. COVID?19 VACCINE NOS. [Concomitant]
     Active Substance: COVID-19 VACCINE NOS
     Dosage: SECOND DOSE
     Dates: start: 20210128, end: 20210128
  4. PEMBROLIZUMAB. [Suspect]
     Active Substance: PEMBROLIZUMAB
     Indication: LUNG ADENOCARCINOMA STAGE IV
     Dosage: 200 MG/3 WEEKS
     Dates: start: 20210127
  5. DECORTIN [Concomitant]
     Active Substance: PREDNISONE
     Indication: RADIATION PNEUMONITIS
     Dosage: (40 MG) UNK
     Route: 048
     Dates: start: 202012, end: 202101

REACTIONS (7)
  - Pneumonitis [Not Recovered/Not Resolved]
  - Inappropriate schedule of product administration [Unknown]
  - Full blood count decreased [Recovered/Resolved]
  - Pneumonia [Not Recovered/Not Resolved]
  - Malignant neoplasm progression [Not Recovered/Not Resolved]
  - Spinal compression fracture [Unknown]
  - COVID-19 [Not Recovered/Not Resolved]

NARRATIVE: CASE EVENT DATE: 202102
